FAERS Safety Report 19046305 (Version 6)
Quarter: 2023Q1

REPORT INFORMATION
  Report Type: Spontaneous
  Country: KR (occurrence: KR)
  Receive Date: 20210322
  Receipt Date: 20230103
  Transmission Date: 20230417
  Serious: Yes (Other)
  Sender: FDA-Public Use
  Company Number: KR-SA-2021SA091759

PATIENT
  Age: 69 Year
  Sex: Male

DRUGS (7)
  1. HARNAL [Suspect]
     Active Substance: TAMSULOSIN HYDROCHLORIDE
     Indication: Benign prostatic hyperplasia
     Dosage: 0.2 MG, ONCE DAILY (AT BEDTIME)
     Route: 065
     Dates: start: 20200925
  2. HARNAL [Suspect]
     Active Substance: TAMSULOSIN HYDROCHLORIDE
     Indication: Micturition disorder
     Dosage: 0.2 MG
     Route: 065
     Dates: start: 20210308
  3. HARNAL [Suspect]
     Active Substance: TAMSULOSIN HYDROCHLORIDE
     Indication: Dysuria
     Dosage: 0.2 MG, ONCE DAILY
     Route: 065
     Dates: start: 20210428
  4. REBAMIPIDE [Concomitant]
     Active Substance: REBAMIPIDE
     Indication: Blood pressure measurement
     Dosage: UNK
     Route: 065
  5. RIPERIDON [Concomitant]
     Indication: Insomnia
     Dosage: UNK
     Route: 065
     Dates: start: 2004
  6. BENZTROPINE [Concomitant]
     Active Substance: BENZTROPINE
     Indication: Insomnia
     Dosage: UNK
     Route: 065
     Dates: start: 2004
  7. FINASTERIDE [Concomitant]
     Active Substance: FINASTERIDE
     Indication: Benign prostatic hyperplasia
     Dosage: UNK
     Dates: start: 20200925

REACTIONS (5)
  - Erectile dysfunction [Not Recovered/Not Resolved]
  - Abdominal discomfort [Recovered/Resolved]
  - Constipation [Recovered/Resolved]
  - Inappropriate schedule of product administration [Unknown]
  - Ejaculation failure [Not Recovered/Not Resolved]

NARRATIVE: CASE EVENT DATE: 20210313
